FAERS Safety Report 20511458 (Version 1)
Quarter: 2022Q1

REPORT INFORMATION
  Report Type: Spontaneous
  Country: US (occurrence: US)
  Receive Date: 20220224
  Receipt Date: 20220224
  Transmission Date: 20220423
  Serious: Yes (Other)
  Sender: FDA-Public Use
  Company Number: US-LANTHEUS-LMI-2021-00404

PATIENT
  Age: 82 Year
  Sex: Male
  Weight: 116 kg

DRUGS (1)
  1. DEFINITY [Suspect]
     Active Substance: PERFLUTREN
     Indication: Echocardiogram
     Dosage: 7 ML (1.5 ML DEFINITY PREPARED IN 9 ML NORMAL SALINE)
     Route: 042
     Dates: start: 20210512, end: 20210512

REACTIONS (1)
  - Unresponsive to stimuli [Recovered/Resolved]

NARRATIVE: CASE EVENT DATE: 20210512
